FAERS Safety Report 15867578 (Version 1)
Quarter: 2019Q1

REPORT INFORMATION
  Report Type: Spontaneous
  Country: FR (occurrence: FR)
  Receive Date: 20190125
  Receipt Date: 20190125
  Transmission Date: 20190417
  Serious: Yes (Other)
  Sender: FDA-Public Use
  Company Number: FR-JNJFOC-20190128685

PATIENT
  Age: 78 Year
  Sex: Female

DRUGS (12)
  1. POTASSIUM CHLORIDE. [Concomitant]
     Active Substance: POTASSIUM CHLORIDE
     Indication: HYPOKALAEMIA
     Route: 048
  2. CORDARONE [Concomitant]
     Active Substance: AMIODARONE HYDROCHLORIDE
     Indication: ATRIAL FIBRILLATION
     Route: 048
  3. METRONIDAZOLE. [Concomitant]
     Active Substance: METRONIDAZOLE
     Indication: CHOLECYSTITIS ACUTE
     Route: 065
     Dates: start: 20180918, end: 20180922
  4. BISOPROLOL FUMARATE. [Concomitant]
     Active Substance: BISOPROLOL FUMARATE
     Indication: CARDIAC FAILURE
     Route: 048
  5. MODOPAR [Concomitant]
     Active Substance: BENSERAZIDE HYDROCHLORIDE\LEVODOPA
     Indication: PRODUCT USED FOR UNKNOWN INDICATION
     Route: 048
  6. PANTOPRAZOLE SODIUM. [Concomitant]
     Active Substance: PANTOPRAZOLE SODIUM
     Indication: PRODUCT USED FOR UNKNOWN INDICATION
     Route: 048
  7. ENALAPRIL MALEATE. [Concomitant]
     Active Substance: ENALAPRIL MALEATE
     Indication: HYPERTENSION
     Route: 048
  8. FUROSEMIDE ARROW [Concomitant]
     Active Substance: FUROSEMIDE
     Indication: CARDIAC FAILURE
     Route: 048
  9. XARELTO [Suspect]
     Active Substance: RIVAROXABAN
     Indication: ATRIAL FIBRILLATION
     Route: 048
  10. CEFTRIAXONE SODIUM. [Concomitant]
     Active Substance: CEFTRIAXONE SODIUM
     Indication: CHOLECYSTITIS ACUTE
     Route: 048
     Dates: start: 20180918, end: 20180922
  11. PHLOROGLUCINOL ARROW [Concomitant]
     Active Substance: PHLOROGLUCINOL
     Route: 048
  12. TIMOFEROL [Concomitant]
     Active Substance: ASCORBIC ACID\FERROUS SULFATE
     Indication: IRON DEFICIENCY ANAEMIA
     Route: 048

REACTIONS (2)
  - Overdose [Recovered/Resolved]
  - Anticoagulation drug level increased [Recovered/Resolved]

NARRATIVE: CASE EVENT DATE: 20180920
